FAERS Safety Report 13717839 (Version 2)
Quarter: 2020Q3

REPORT INFORMATION
  Report Type: Report from Study
  Country: US (occurrence: US)
  Receive Date: 20170705
  Receipt Date: 20170713
  Transmission Date: 20201104
  Serious: Yes (Hospitalization)
  Sender: FDA-Public Use
  Company Number: US-ASTRAZENECA-2017SE68776

PATIENT
  Age: 46 Year
  Sex: Male
  Weight: 63.6 kg

DRUGS (10)
  1. CEDIRANIB. [Suspect]
     Active Substance: CEDIRANIB
     Indication: COLON CANCER
     Dosage: 20 MG
     Route: 048
     Dates: start: 20170605, end: 20170629
  2. OMEPRAZOLE. [Concomitant]
     Active Substance: OMEPRAZOLE
     Route: 048
  3. CLARITIN [Concomitant]
     Active Substance: LORATADINE
     Dosage: 10 MG PO DAILY IN AM
     Route: 048
  4. GABAPENTIN. [Concomitant]
     Active Substance: GABAPENTIN
  5. IBUPROFEN. [Concomitant]
     Active Substance: IBUPROFEN
  6. MULTIVITAMIN [Concomitant]
     Active Substance: VITAMINS
     Dosage: 1 TAB PO DAILY IN AM
     Route: 048
  7. ALBUTEROL. [Concomitant]
     Active Substance: ALBUTEROL
     Dosage: 1.25G AS REQUIRED
     Route: 055
  8. MEDI4736 [Suspect]
     Active Substance: DURVALUMAB
     Indication: COLON CANCER
     Route: 042
     Dates: start: 20170621
  9. OXYCODONE [Concomitant]
     Active Substance: OXYCODONE
  10. SYMBICORT [Concomitant]
     Active Substance: BUDESONIDE\FORMOTEROL FUMARATE DIHYDRATE
     Dosage: 160/4.5 MCG INHALED 2 TIMES A DAY
     Route: 054

REACTIONS (4)
  - Lower gastrointestinal haemorrhage [Unknown]
  - Colitis [Unknown]
  - Anaemia [Unknown]
  - Hypotension [Unknown]

NARRATIVE: CASE EVENT DATE: 20170629
